FAERS Safety Report 5651501-X (Version None)
Quarter: 2008Q1

REPORT INFORMATION
  Report Type: 
  Country: None (occurrence: None)
  Receive Date: 20080305
  Receipt Date: 20080225
  Transmission Date: 20080703
  Serious: No
  Sender: FDA-Public Use
  Company Number: US-PFIZER INC-2007034142

PATIENT
  Sex: Female
  Weight: 111.1 kg

DRUGS (14)
  1. CHANTIX [Suspect]
     Indication: EX-SMOKER
     Dates: start: 20070424, end: 20070530
  2. CHANTIX [Suspect]
     Indication: TOBACCO ABUSE
  3. UNITHROID [Concomitant]
  4. GLUCOPHAGE [Concomitant]
  5. ACTOS [Concomitant]
  6. REGLAN [Concomitant]
  7. ACIPHEX [Concomitant]
  8. LANTUS [Concomitant]
  9. HUMALOG [Concomitant]
  10. CYMBALTA [Concomitant]
  11. TRAZODONE HCL [Concomitant]
  12. BUSPAR [Concomitant]
  13. DRUG, UNSPECIFIED [Concomitant]
  14. INSULIN [Concomitant]

REACTIONS (1)
  - NO ADVERSE EVENT [None]
